FAERS Safety Report 22222502 (Version 1)
Quarter: 2023Q2

REPORT INFORMATION
  Report Type: Spontaneous
  Country: US (occurrence: None)
  Receive Date: 20230417
  Receipt Date: 20230417
  Transmission Date: 20230721
  Serious: Yes (Life-Threatening, Disabling, Other)
  Sender: FDA-Public Use
  Company Number: None

PATIENT
  Age: 46 Year
  Sex: Female
  Weight: 63 kg

DRUGS (2)
  1. ALPRAZOLAM [Suspect]
     Active Substance: ALPRAZOLAM
     Indication: Anxiety
     Dates: start: 20130516, end: 20230331
  2. LISINOPRIL [Concomitant]
     Active Substance: LISINOPRIL

REACTIONS (7)
  - Ear infection [None]
  - Otorrhoea [None]
  - Purulent discharge [None]
  - Hallucination [None]
  - Muscle twitching [None]
  - Insomnia [None]
  - Inappropriate schedule of product discontinuation [None]

NARRATIVE: CASE EVENT DATE: 20221017
